FAERS Safety Report 18866359 (Version 1)
Quarter: 2021Q1

REPORT INFORMATION
  Report Type: Spontaneous
  Country: US (occurrence: US)
  Receive Date: 20210208
  Receipt Date: 20210208
  Transmission Date: 20210420
  Serious: No
  Sender: FDA-Public Use
  Company Number: US-INCYTE CORPORATION-2021IN000456

PATIENT

DRUGS (1)
  1. JAKAFI [Suspect]
     Active Substance: RUXOLITINIB
     Indication: POLYCYTHAEMIA VERA
     Dosage: 10 MILLIGRAM
     Route: 065

REACTIONS (5)
  - Nausea [Unknown]
  - Skin discolouration [Unknown]
  - Rash pruritic [Unknown]
  - Rash erythematous [Unknown]
  - Fatigue [Unknown]
